FAERS Safety Report 25905003 (Version 1)
Quarter: 2025Q4

REPORT INFORMATION
  Report Type: Spontaneous
  Country: GB (occurrence: GB)
  Receive Date: 20251010
  Receipt Date: 20251010
  Transmission Date: 20260118
  Serious: Yes (Other)
  Sender: CELLTRION
  Company Number: GB-CELLTRION INC.-2025GB036006

PATIENT

DRUGS (1)
  1. INFLIXIMAB [Suspect]
     Active Substance: INFLIXIMAB
     Indication: Colitis ulcerative
     Dosage: 2 X REMSIMA 120MG/1ML SOLUTION FOR INJECTION PRE-FILLED PENS INJECT ONE PRE-FILLED PEN EVERY TWO WEE
     Route: 058
     Dates: start: 20250528

REACTIONS (2)
  - Knee operation [Unknown]
  - Intentional dose omission [Unknown]
